FAERS Safety Report 15293112 (Version 1)
Quarter: 2018Q4

REPORT INFORMATION
  Report Type: Spontaneous
  Country: IE (occurrence: IE)
  Receive Date: 20180820
  Receipt Date: 20180820
  Transmission Date: 20190204
  Serious: Yes (Death, Other)
  Sender: FDA-Public Use
  Company Number: IE-TEVA-2018-IE-943970

PATIENT
  Age: 33 Year
  Sex: Female

DRUGS (7)
  1. OLANZAPINE (G) [Interacting]
     Active Substance: OLANZAPINE
     Dosage: THREE TIMES DAILY
     Route: 048
  2. PHENERGAN [Concomitant]
     Active Substance: PROMETHAZINE HYDROCHLORIDE
     Dosage: 2 TABLETS AT NIGHT
     Route: 048
  3. PROZAMEL [Concomitant]
     Route: 048
  4. ARIPIPRAZOLE (G) [Suspect]
     Active Substance: ARIPIPRAZOLE
     Route: 048
  5. DALMANE [Concomitant]
     Active Substance: FLURAZEPAM HYDROCHLORIDE
     Dosage: AT NIGHT
     Route: 048
  6. ATIVAN [Concomitant]
     Active Substance: LORAZEPAM
     Dosage: 2 TABLETS TWICE DAILY
     Route: 048
  7. LYRICA [Concomitant]
     Active Substance: PREGABALIN
     Dosage: THREE TIMES DAILY, ONE MANE 2 NOCTE
     Route: 048

REACTIONS (4)
  - Pulmonary oedema [Unknown]
  - Drug interaction [Fatal]
  - Drug interaction [Unknown]
  - Pulmonary congestion [Unknown]
